FAERS Safety Report 8270498-X (Version None)
Quarter: 2012Q2

REPORT INFORMATION
  Report Type: 
  Country: None (occurrence: None)
  Receive Date: 20120410
  Receipt Date: 20120402
  Transmission Date: 20120825
  Serious: Yes (Other)
  Sender: FDA-Public Use
  Company Number: US-BAYER-2012-012228

PATIENT
  Age: 28 Year
  Sex: Female
  Weight: 62.585 kg

DRUGS (5)
  1. FOLIC ACID [Concomitant]
  2. ASCORBIC ACID [Concomitant]
  3. BEYAZ [Suspect]
     Indication: CONTRACEPTION
     Dosage: UNK UNK, QD
     Route: 048
     Dates: start: 20110329, end: 20120309
  4. VITAMIN B COMPLEX CAP [Concomitant]
  5. FISH OIL [Concomitant]

REACTIONS (2)
  - PALPITATIONS [None]
  - CARDIAC FLUTTER [None]
